FAERS Safety Report 8402183-5 (Version None)
Quarter: 2012Q2

REPORT INFORMATION
  Report Type: 
  Country: None (occurrence: None)
  Receive Date: 20120601
  Receipt Date: 20120530
  Transmission Date: 20120825
  Serious: Yes (Other)
  Sender: FDA-Public Use
  Company Number: US-BAYER-2012-053491

PATIENT
  Sex: Female

DRUGS (2)
  1. MIRENA [Suspect]
     Indication: CONTRACEPTION
     Dosage: 20 MCG/24HR, UNK
     Route: 015
     Dates: start: 20090901, end: 20110901
  2. PROLACTIN [Concomitant]
     Dosage: 10 MG, UNK

REACTIONS (4)
  - FUNGAL INFECTION [None]
  - AMENORRHOEA [None]
  - VAGINAL INFECTION [None]
  - URINARY TRACT INFECTION [None]
